FAERS Safety Report 6518818-8 (Version None)
Quarter: 2009Q4

REPORT INFORMATION
  Report Type: 
  Country: None (occurrence: None)
  Receive Date: 20091228
  Receipt Date: 20091210
  Transmission Date: 20100525
  Serious: Yes (Hospitalization)
  Sender: FDA-Public Use
  Company Number: DE-BRACCO-000500

PATIENT
  Age: 51 Year
  Sex: Female

DRUGS (1)
  1. MULTIHANCE [Suspect]
     Indication: NUCLEAR MAGNETIC RESONANCE IMAGING
     Route: 065

REACTIONS (9)
  - CHILLS [None]
  - DYSPNOEA [None]
  - EPILEPSY [None]
  - ERYTHEMA [None]
  - FOAMING AT MOUTH [None]
  - LOSS OF CONSCIOUSNESS [None]
  - NAUSEA [None]
  - PALLOR [None]
  - VOMITING [None]
